FAERS Safety Report 24537683 (Version 1)
Quarter: 2024Q4

REPORT INFORMATION
  Report Type: Spontaneous
  Country: JP (occurrence: JP)
  Receive Date: 20241023
  Receipt Date: 20241023
  Transmission Date: 20250115
  Serious: Yes (Hospitalization)
  Sender: AMNEAL
  Company Number: JP-AMNEAL PHARMACEUTICALS-2024-AMRX-03847

PATIENT

DRUGS (4)
  1. ONGENTYS [Suspect]
     Active Substance: OPICAPONE
     Indication: Parkinson^s disease
     Dosage: UNK
     Route: 048
  2. ONGENTYS [Suspect]
     Active Substance: OPICAPONE
     Dosage: 25 MILLIGRAM
     Route: 048
     Dates: start: 20240205
  3. SAFINAMIDE MESYLATE [Concomitant]
     Active Substance: SAFINAMIDE MESYLATE
     Indication: Product used for unknown indication
     Dosage: TABLET
     Route: 048
  4. ROTIGOTINE [Concomitant]
     Active Substance: ROTIGOTINE
     Indication: Product used for unknown indication
     Dosage: UNK
     Route: 062

REACTIONS (14)
  - Infusion site abscess [Recovered/Resolved]
  - Speech disorder [Unknown]
  - Catheter site pain [Not Recovered/Not Resolved]
  - Infusion site pain [Unknown]
  - Infusion site induration [Unknown]
  - Infusion site induration [Unknown]
  - Night sweats [Recovered/Resolved]
  - Mobility decreased [Unknown]
  - Infusion site pruritus [Recovered/Resolved]
  - Therapeutic product effect incomplete [Recovered/Resolved]
  - Infusion site discharge [Unknown]
  - Infusion site erythema [Recovered/Resolved]
  - Dyskinesia [Recovered/Resolved]
  - Sudden onset of sleep [Recovered/Resolved]

NARRATIVE: CASE EVENT DATE: 20231214
